FAERS Safety Report 8578115-6 (Version None)
Quarter: 2012Q3

REPORT INFORMATION
  Report Type: 
  Country: None (occurrence: None)
  Receive Date: 20120808
  Receipt Date: 20120806
  Transmission Date: 20120928
  Serious: Yes (Other)
  Sender: FDA-Public Use
  Company Number: PHEH2007US03438

PATIENT
  Sex: Female

DRUGS (27)
  1. EPOGEN [Concomitant]
  2. METHOTREXATE [Concomitant]
     Indication: SARCOIDOSIS
     Dates: end: 20030101
  3. VIOXX [Concomitant]
  4. PNEUMOCOCCAL VACCINE [Concomitant]
  5. NAPROSYN [Concomitant]
     Dates: start: 20060101
  6. INFLUENZA VACCINE [Concomitant]
     Dates: start: 20040101
  7. AUGMENTIN '500' [Interacting]
     Indication: OSTEOMYELITIS
  8. SUDAFED 12 HOUR [Concomitant]
  9. CELEBREX [Concomitant]
  10. PREDNISONE [Concomitant]
  11. PROVERA [Concomitant]
     Dosage: 2.5 MG, QD
  12. ULTRAM [Concomitant]
     Dosage: 50 MG, UNK
  13. OXYCODONE HCL [Concomitant]
     Dosage: 5 MG, UNK
  14. VALACYCLOVIR HYDROCHLORIDE [Concomitant]
     Dosage: 1 G, UNK
  15. AMOXICILLIN [Concomitant]
     Dosage: 500 MG, TID
  16. AREDIA [Suspect]
     Indication: SARCOIDOSIS
     Route: 042
     Dates: start: 20010101
  17. PREMPRO [Concomitant]
  18. SEPTRA [Concomitant]
  19. PREMARIN [Concomitant]
     Indication: MENOPAUSE
     Dosage: 0.3 MG, QD
  20. CALCIUM W/VITAMIN D NOS [Concomitant]
  21. TYLENOL [Concomitant]
  22. ARANESP [Concomitant]
     Indication: ANAEMIA
  23. CORTISONE ACETATE [Concomitant]
     Dosage: 80 MG, ONCE/SINGLE
     Route: 030
     Dates: start: 20030601
  24. ALLEGRA-D 12 HOUR [Concomitant]
  25. ZOMETA [Suspect]
     Indication: SARCOIDOSIS
     Route: 042
     Dates: start: 20010101
  26. PREVACID [Concomitant]
  27. VICOPROFEN [Concomitant]
     Dosage: 7.5 MG OF HYDROCODONE- 200 MG OF IBUPROFEN

REACTIONS (46)
  - TOOTH EXTRACTION [None]
  - DEPRESSION [None]
  - ANAEMIA [None]
  - RECTAL HAEMORRHAGE [None]
  - ATELECTASIS [None]
  - UPPER RESPIRATORY TRACT INFECTION [None]
  - OSTEONECROSIS [None]
  - FALL [None]
  - DYSPNOEA [None]
  - WEIGHT DECREASED [None]
  - MALAISE [None]
  - BLOOD UREA INCREASED [None]
  - NOCTURIA [None]
  - MYALGIA [None]
  - TOOTHACHE [None]
  - INCISION SITE PAIN [None]
  - VERTIGO [None]
  - PYREXIA [None]
  - PELVIC PAIN [None]
  - MICTURITION URGENCY [None]
  - PNEUMONIA [None]
  - SKIN HYPERPIGMENTATION [None]
  - HAEMATURIA [None]
  - IMPAIRED HEALING [None]
  - RHINITIS SEASONAL [None]
  - SNORING [None]
  - SOMNOLENCE [None]
  - CERVICITIS [None]
  - URINE ANALYSIS ABNORMAL [None]
  - HAEMORRHOIDAL HAEMORRHAGE [None]
  - NEPHROLITHIASIS [None]
  - VISION BLURRED [None]
  - DIARRHOEA [None]
  - DYSKINESIA [None]
  - OSTEOMYELITIS [None]
  - ABSCESS SOFT TISSUE [None]
  - ANXIETY [None]
  - HEADACHE [None]
  - RENAL ATROPHY [None]
  - HYPERHIDROSIS [None]
  - CHILLS [None]
  - INCISION SITE HAEMORRHAGE [None]
  - ARTHRALGIA [None]
  - POLLAKIURIA [None]
  - VAGINAL HAEMORRHAGE [None]
  - PULMONARY EMBOLISM [None]
